FAERS Safety Report 9250612 (Version 1)
Quarter: 2013Q1

REPORT INFORMATION
  Report Type: Spontaneous
  Country: US (occurrence: None)
  Receive Date: 20130305
  Receipt Date: 20130305
  Transmission Date: 20140127
  Serious: Yes (Hospitalization)
  Sender: FDA-Public Use
  Company Number: 163-21880-12040308

PATIENT
  Age: 77 Year
  Sex: Male

DRUGS (9)
  1. REVLIMID (LENALIDOMIDE) [Suspect]
  2. FOLIC ACID (FOLIC ACID) [Concomitant]
  3. HYDRALAZINE HCL (HYDRALAZINE HYDROCHLORIDE) [Concomitant]
  4. ISOSORBIDE (ISOSORBIDE) [Concomitant]
  5. KLOR-CON 10 (POTASSIUM CHLORIDE) [Concomitant]
  6. LASIX (FUROSEMIDE) [Concomitant]
  7. LEVOFLOXACIN (LEVOFLOXACIN) [Concomitant]
  8. NIFEDIPINE [Concomitant]
  9. TAMSULOSIN HCL (TAMSULOSIN HYDROCHLORIDE) [Concomitant]

REACTIONS (1)
  - Heart rate decreased [None]
